FAERS Safety Report 18627075 (Version 1)
Quarter: 2020Q4

REPORT INFORMATION
  Report Type: Spontaneous
  Country: US (occurrence: US)
  Receive Date: 20201217
  Receipt Date: 20201217
  Transmission Date: 20210114
  Serious: Yes (Hospitalization)
  Sender: FDA-Public Use
  Company Number: US-AXELLIA-003586

PATIENT
  Age: 67 Year
  Sex: Female
  Weight: 60 kg

DRUGS (1)
  1. VANCOMYCIN [Suspect]
     Active Substance: VANCOMYCIN
     Indication: CENTRAL VENOUS CATHETERISATION
     Dosage: STRENGTH 750 MG
     Route: 042
     Dates: start: 20200127, end: 20200127

REACTIONS (1)
  - Drug hypersensitivity [Unknown]

NARRATIVE: CASE EVENT DATE: 20200127
